FAERS Safety Report 23345824 (Version 1)
Quarter: 2023Q4

REPORT INFORMATION
  Report Type: Report from Study
  Country: US (occurrence: US)
  Receive Date: 20231228
  Receipt Date: 20231228
  Transmission Date: 20240110
  Serious: Yes (Death, Hospitalization)
  Sender: FDA-Public Use
  Company Number: US-Eisai-EC-2023-155905

PATIENT
  Age: 69 Year
  Sex: Female
  Weight: 103 kg

DRUGS (32)
  1. LENVIMA [Suspect]
     Active Substance: LENVATINIB
     Indication: Endometrial cancer
     Route: 048
     Dates: start: 20230901, end: 202312
  2. CARVEDILOL [Concomitant]
     Active Substance: CARVEDILOL
  3. TYLENOL [Concomitant]
     Active Substance: ACETAMINOPHEN
  4. ALBUTEROL [Concomitant]
     Active Substance: ALBUTEROL
     Route: 048
  5. AMLODIPINE BESYLATE [Concomitant]
     Active Substance: AMLODIPINE BESYLATE
  6. CLOTRIMAZOLE [Concomitant]
     Active Substance: CLOTRIMAZOLE
  7. FENOFIBRATE [Concomitant]
     Active Substance: FENOFIBRATE
  8. FERROUS SULFATE [Concomitant]
     Active Substance: FERROUS SULFATE
  9. FUROSEMIDE [Concomitant]
     Active Substance: FUROSEMIDE
  10. INSULIN LISPRO [Concomitant]
     Active Substance: INSULIN LISPRO
  11. INSULIN GLARGINE [Concomitant]
     Active Substance: INSULIN GLARGINE
  12. PREDNISONE [Concomitant]
     Active Substance: PREDNISONE
  13. ROSUVASTATIN CALCIUM [Concomitant]
     Active Substance: ROSUVASTATIN CALCIUM
     Route: 048
  14. SENNA [Concomitant]
     Active Substance: SENNA LEAF\SENNOSIDES\SENNOSIDES A AND B
     Route: 048
  15. SYSTANE (HYPROMELLOSE 2910 (4000 MPA.S)) [Concomitant]
     Active Substance: HYPROMELLOSE 2910 (4000 MPA.S)
  16. VITAMIN B12 [Concomitant]
     Active Substance: CYANOCOBALAMIN
  17. VITAMIN D [Concomitant]
     Active Substance: VITAMIN D NOS
  18. OMEPRAZOLE [Concomitant]
     Active Substance: OMEPRAZOLE
  19. NYSTATIN [Concomitant]
     Active Substance: NYSTATIN
  20. LORATADINE [Concomitant]
     Active Substance: LORATADINE
  21. LORAZEPAM [Concomitant]
     Active Substance: LORAZEPAM
  22. MAGNESIUM OXIDE [Concomitant]
     Active Substance: MAGNESIUM OXIDE
  23. MOMETASONE FUROATE [Concomitant]
     Active Substance: MOMETASONE FUROATE
  24. FLUTICASONE [Concomitant]
     Active Substance: FLUTICASONE
  25. ASPIRIN [Concomitant]
     Active Substance: ASPIRIN
  26. DOXYCYCLINE [Concomitant]
     Active Substance: DOXYCYCLINE
  27. ONDANSETRON [Concomitant]
     Active Substance: ONDANSETRON
  28. POTASSIUM [Concomitant]
     Active Substance: POTASSIUM
  29. PROCHLORPERAZINE [Concomitant]
     Active Substance: PROCHLORPERAZINE
  30. FLUCONAZOLE [Concomitant]
     Active Substance: FLUCONAZOLE
  31. CEFPODOXIME [Concomitant]
     Active Substance: CEFPODOXIME
  32. SULFAMETHOXAZOLE\TRIMETHOPRIM [Concomitant]
     Active Substance: SULFAMETHOXAZOLE\TRIMETHOPRIM

REACTIONS (3)
  - Death [Fatal]
  - Dyspnoea [Recovering/Resolving]
  - Pleural effusion [Recovering/Resolving]

NARRATIVE: CASE EVENT DATE: 20231201
